FAERS Safety Report 4473985-5 (Version None)
Quarter: 2004Q4

REPORT INFORMATION
  Report Type: 
  Country: None (occurrence: None)
  Receive Date: 20041013
  Receipt Date: 20041013
  Transmission Date: 20050328
  Serious: Yes (Hospitalization)
  Sender: FDA-Public Use
  Company Number: None

PATIENT
  Age: 59 Year
  Sex: Female
  Weight: 49.9 kg

DRUGS (8)
  1. CPT-11 [Suspect]
     Indication: LUNG NEOPLASM MALIGNANT
     Dosage: 6 MG /M2 IV
     Route: 042
     Dates: start: 20030103
  2. CPT-11 [Suspect]
     Indication: LUNG NEOPLASM MALIGNANT
     Dosage: 6 MG /M2 IV
     Route: 042
     Dates: start: 20031021
  3. CPT-11 [Suspect]
     Indication: LUNG NEOPLASM MALIGNANT
     Dosage: 6 MG /M2 IV
     Route: 042
     Dates: start: 20031112
  4. CPT-11 [Suspect]
     Indication: LUNG NEOPLASM MALIGNANT
     Dosage: 6 MG /M2 IV
     Route: 042
     Dates: start: 20031213
  5. CISPLATIN [Suspect]
     Indication: LUNG NEOPLASM MALIGNANT
     Dosage: 60 MG/M2 IV
     Route: 042
     Dates: start: 20031021
  6. CISPLATIN [Suspect]
     Indication: LUNG NEOPLASM MALIGNANT
     Dosage: 60 MG/M2 IV
     Route: 042
     Dates: start: 20031112
  7. CISPLATIN [Suspect]
     Indication: LUNG NEOPLASM MALIGNANT
     Dosage: 60 MG/M2 IV
     Route: 042
     Dates: start: 20031217
  8. CISPLATIN [Suspect]
     Indication: LUNG NEOPLASM MALIGNANT
     Dosage: 60 MG/M2 IV
     Route: 042
     Dates: start: 20040120

REACTIONS (2)
  - CEREBROVASCULAR ACCIDENT [None]
  - MYOCARDIAL INFARCTION [None]
